FAERS Safety Report 9604659 (Version 2)
Quarter: 2013Q4

REPORT INFORMATION
  Report Type: Spontaneous
  Country: US (occurrence: US)
  Receive Date: 20131008
  Receipt Date: 20131112
  Transmission Date: 20140711
  Serious: No
  Sender: FDA-Public Use
  Company Number: US-PFIZER INC-2013283133

PATIENT
  Sex: Female

DRUGS (14)
  1. PROTONIX [Suspect]
     Dosage: UNK
  2. INDERAL [Suspect]
     Dosage: UNK
  3. AMOXICILLIN [Suspect]
     Dosage: UNK
  4. MORPHINE SULFATE [Suspect]
     Dosage: UNK
  5. ASPIRIN [Suspect]
     Dosage: UNK
  6. STADOL [Suspect]
     Dosage: UNK
  7. CODEINE [Suspect]
     Dosage: UNK
  8. ALLEGRA-D [Suspect]
     Dosage: UNK
  9. METHADONE [Suspect]
     Dosage: UNK
  10. PERCOCET [Suspect]
     Dosage: UNK
  11. TYLOX [Suspect]
     Dosage: UNK
  12. GABITRIL [Suspect]
     Dosage: UNK
  13. ZANAFLEX [Suspect]
     Dosage: UNK
  14. UROBLUE [Suspect]
     Dosage: UNK

REACTIONS (1)
  - Drug hypersensitivity [Unknown]
